FAERS Safety Report 10381070 (Version 2)
Quarter: 2014Q3

REPORT INFORMATION
  Report Type: Report from Study
  Country: BR (occurrence: BR)
  Receive Date: 20140813
  Receipt Date: 20140813
  Transmission Date: 20150326
  Serious: Yes (Death, Other)
  Sender: FDA-Public Use
  Company Number: BR-ABBVIE-12P-020-0896896-00

PATIENT
  Sex: Male
  Weight: 78 kg

DRUGS (2)
  1. UNKNOWN MEDICATION [Concomitant]
     Active Substance: UNSPECIFIED INGREDIENT
     Indication: PRODUCT USED FOR UNKNOWN INDICATION
     Route: 061
  2. HUMIRA [Suspect]
     Active Substance: ADALIMUMAB
     Indication: PSORIATIC ARTHROPATHY
     Route: 058
     Dates: start: 20111226

REACTIONS (6)
  - Infarction [Recovered/Resolved]
  - Respiratory failure [Fatal]
  - Infarction [Fatal]
  - Catheterisation cardiac [Unknown]
  - Angioplasty [Unknown]
  - Renal failure [Fatal]

NARRATIVE: CASE EVENT DATE: 2012
